FAERS Safety Report 9544269 (Version 2)
Quarter: 2014Q1

REPORT INFORMATION
  Report Type: Spontaneous
  Country: IT (occurrence: IT)
  Receive Date: 20130923
  Receipt Date: 20140212
  Transmission Date: 20141002
  Serious: Yes (Other)
  Sender: FDA-Public Use
  Company Number: IT-MYLANLABS-2013S1020426

PATIENT
  Age: 97 Year
  Sex: Female
  Weight: 40 kg

DRUGS (5)
  1. QUETIAPINE [Suspect]
     Indication: COGNITIVE DISORDER
     Route: 048
     Dates: start: 20130710, end: 20130730
  2. ADALAT [Concomitant]
     Indication: PRODUCT USED FOR UNKNOWN INDICATION
  3. CARDIOASPIRIN [Concomitant]
     Indication: PRODUCT USED FOR UNKNOWN INDICATION
  4. LANSOPRAZOLE [Concomitant]
     Indication: PRODUCT USED FOR UNKNOWN INDICATION
  5. FORTIMEL [Concomitant]
     Indication: PRODUCT USED FOR UNKNOWN INDICATION

REACTIONS (3)
  - Headache [Recovered/Resolved]
  - Sopor [Recovered/Resolved]
  - Hyporesponsive to stimuli [Recovered/Resolved]
